FAERS Safety Report 19165830 (Version 1)
Quarter: 2021Q2

REPORT INFORMATION
  Report Type: Spontaneous
  Country: JP (occurrence: JP)
  Receive Date: 20210422
  Receipt Date: 20210422
  Transmission Date: 20210717
  Serious: Yes (Other)
  Sender: FDA-Public Use
  Company Number: JP-ASTRAZENECA-2021A320853

PATIENT
  Age: 55 Year
  Sex: Female

DRUGS (1)
  1. IMFINZI [Suspect]
     Active Substance: DURVALUMAB
     Indication: NON-SMALL CELL LUNG CANCER
     Route: 041
     Dates: end: 202101

REACTIONS (2)
  - Metastases to adrenals [Unknown]
  - Organising pneumonia [Unknown]

NARRATIVE: CASE EVENT DATE: 2021
